FAERS Safety Report 15712680 (Version 1)
Quarter: 2018Q4

REPORT INFORMATION
  Report Type: Spontaneous
  Country: US (occurrence: US)
  Receive Date: 20181212
  Receipt Date: 20181212
  Transmission Date: 20190205
  Serious: No
  Sender: FDA-Public Use
  Company Number: US-TEVA-2018-US-984780

PATIENT

DRUGS (1)
  1. ALPRAZOLAM 0.25MG [Suspect]
     Active Substance: ALPRAZOLAM
     Indication: ANXIETY
     Dates: start: 20181128

REACTIONS (7)
  - Headache [Recovered/Resolved]
  - Pain [Unknown]
  - Product quality issue [Unknown]
  - Oropharyngeal pain [Unknown]
  - Fatigue [Unknown]
  - Epigastric discomfort [Unknown]
  - Oesophageal irritation [Unknown]

NARRATIVE: CASE EVENT DATE: 20181128
